FAERS Safety Report 11592575 (Version 1)
Quarter: 2015Q4

REPORT INFORMATION
  Report Type: Spontaneous
  Country: US (occurrence: US)
  Receive Date: 20151005
  Receipt Date: 20151005
  Transmission Date: 20160304
  Serious: No
  Sender: FDA-Public Use
  Company Number: US-ENDO PHARMACEUTICALS INC.-2015-001919

PATIENT
  Age: 61 Year
  Sex: Female

DRUGS (1)
  1. BACLOFEN TABLETS [Suspect]
     Active Substance: BACLOFEN
     Indication: MUSCLE SPASMS
     Route: 065

REACTIONS (1)
  - Drug ineffective [Not Recovered/Not Resolved]
